FAERS Safety Report 5381391-4 (Version None)
Quarter: 2007Q3

REPORT INFORMATION
  Report Type: 
  Country: None (occurrence: None)
  Receive Date: 20070709
  Receipt Date: 20070430
  Transmission Date: 20080115
  Serious: Yes (Other)
  Sender: FDA-Public Use
  Company Number: GB-NOVOPROD-263306

PATIENT
  Age: 9 Year
  Sex: Male
  Weight: 26.4 kg

DRUGS (2)
  1. LEVEMIR [Suspect]
     Indication: DIABETES MELLITUS
     Dosage: 6 IU, QD
     Route: 058
     Dates: start: 20060321, end: 20060421
  2. NOVORAPID [Concomitant]
     Indication: DIABETES MELLITUS
     Dosage: UNK, UNK
     Route: 058

REACTIONS (5)
  - CONDITION AGGRAVATED [None]
  - EMOTIONAL DISORDER [None]
  - MALAISE [None]
  - PSORIASIS [None]
  - PSYCHIATRIC SYMPTOM [None]
